FAERS Safety Report 24016916 (Version 3)
Quarter: 2024Q3

REPORT INFORMATION
  Report Type: Spontaneous
  Country: ES (occurrence: ES)
  Receive Date: 20240626
  Receipt Date: 20240710
  Transmission Date: 20241016
  Serious: Yes (Hospitalization, Other)
  Sender: APELLIS PHARMACEUTICALS
  Company Number: ES-BIOVITRUM-2023-ES-017128

PATIENT

DRUGS (4)
  1. PEGCETACOPLAN [Suspect]
     Active Substance: PEGCETACOPLAN
     Indication: Paroxysmal nocturnal haemoglobinuria
     Dosage: 24-OCT-2023: THE HEMATOLOGIST DECIDED TO ADMINISTER PEGCETACOPLAN FOR 3 CONSECUTIVE DAYS.?1800 MG...
     Route: 058
     Dates: start: 20230111
  2. PEGCETACOPLAN [Suspect]
     Active Substance: PEGCETACOPLAN
     Dosage: AS THE PATIENT WAS ALREADY RECEIVING PEGCETACOPLAN EVERY 3 DAYS, AFTER RECEIVING THE 3 CONSECUTIV...
     Route: 058
     Dates: start: 2024
  3. PEGCETACOPLAN [Suspect]
     Active Substance: PEGCETACOPLAN
     Dosage: DAILY?3 CONSECUTIVE DAYS
     Route: 058
     Dates: start: 20240613, end: 20240615
  4. PEGCETACOPLAN [Suspect]
     Active Substance: PEGCETACOPLAN
     Dosage: 3 DAYS/WEEK (MONDAY WEDNESDAY ANDFRIDAY)
     Route: 058
     Dates: start: 20240621

REACTIONS (14)
  - Haemolysis [Recovering/Resolving]
  - COVID-19 [Recovered/Resolved]
  - Off label use [Unknown]
  - Chest pain [Recovered/Resolved]
  - Influenza [Recovered/Resolved]
  - Leukocyturia [Recovering/Resolving]
  - Vomiting [Recovering/Resolving]
  - Oesophageal spasm [Recovering/Resolving]
  - Abdominal pain [Recovering/Resolving]
  - Pyrexia [Recovering/Resolving]
  - Ear pain [Recovering/Resolving]
  - Choluria [Recovered/Resolved]
  - Dysphagia [Recovered/Resolved]
  - Anaemia [Unknown]

NARRATIVE: CASE EVENT DATE: 20231001
